FAERS Safety Report 7084872-0 (Version None)
Quarter: 2010Q4

REPORT INFORMATION
  Report Type: 
  Country: None (occurrence: None)
  Receive Date: 20101027
  Receipt Date: 20101006
  Transmission Date: 20110411
  Serious: Yes (Hospitalization)
  Sender: FDA-Public Use
  Company Number: AE-2009-004

PATIENT
  Age: 82 Year
  Sex: Female
  Weight: 57 kg

DRUGS (4)
  1. HYDROCHLOROTHIAZIDE [Suspect]
     Indication: HYPERTENSION
     Dosage: 12.5 MG, QD, ORAL
     Route: 048
     Dates: end: 20081204
  2. LISINOPRIL AND HYDROCHLOROTHIAZIDE [Suspect]
     Indication: HYPERTENSION
     Dosage: 0.5 DF, QD, ORAL
     Route: 048
     Dates: end: 20081204
  3. MELPERONE HYDROCHLOROTHIAZIDE [Concomitant]
  4. RISPERIDONE [Concomitant]

REACTIONS (1)
  - DEHYDRATION [None]
